FAERS Safety Report 8135566-1 (Version None)
Quarter: 2012Q1

REPORT INFORMATION
  Report Type: 
  Country: None (occurrence: None)
  Receive Date: 20120214
  Receipt Date: 20120202
  Transmission Date: 20120608
  Serious: Yes (Hospitalization)
  Sender: FDA-Public Use
  Company Number: DE-UCBSA-044524

PATIENT
  Age: 71 Year
  Sex: Female

DRUGS (28)
  1. NEUPRO [Suspect]
     Route: 062
     Dates: start: 20101022, end: 20101027
  2. LEVOPAR [Concomitant]
     Dosage: FREQUENCY: 1/2-0-1/2
     Dates: start: 20100416, end: 20100419
  3. MADOPAR [Concomitant]
     Dates: start: 20110512, end: 20111208
  4. ENALAPRIL PLUS [Concomitant]
     Indication: HYPERTENSION
     Dates: start: 20110901, end: 20110101
  5. ENALAPRIL PLUS [Concomitant]
     Dosage: 10/25 MG
     Dates: start: 20110512
  6. LEVOPAR [Concomitant]
     Dosage: FREQUENCY: 1/2-0-0 (100 MG TABLET)
     Dates: start: 20100420, end: 20100430
  7. AMANTADINE HCL [Concomitant]
     Dates: start: 20101021
  8. ENALAPRIL PLUS [Concomitant]
     Route: 048
     Dates: start: 20100415, end: 20110401
  9. SEROQUEL [Concomitant]
     Indication: HALLUCINATION
     Route: 048
     Dates: start: 20110512, end: 20110917
  10. NEUPRO [Suspect]
     Route: 062
     Dates: start: 20101001, end: 20101001
  11. AMANTADINE HCL [Concomitant]
     Dates: end: 20091001
  12. AZILECT [Concomitant]
     Dates: start: 20110512
  13. SIMVASTATIN [Concomitant]
     Dates: start: 20110512
  14. AMLODIPINE [Concomitant]
     Indication: HYPERTENSION
     Dates: start: 20110917
  15. NEUPRO [Suspect]
     Route: 062
     Dates: start: 20091001, end: 20091001
  16. NEUPRO [Suspect]
     Route: 062
     Dates: start: 20090701, end: 20091001
  17. MADOPAR LT [Concomitant]
     Dates: start: 20110512
  18. NEUPRO [Suspect]
     Route: 062
     Dates: start: 20091001, end: 20100401
  19. BISOPROLOL FUMARATE [Concomitant]
     Indication: HYPERTENSION
     Dates: start: 20110917
  20. METROPLROLOL [Concomitant]
     Indication: HYPERTENSION
     Route: 048
     Dates: end: 20110917
  21. SPIRONOLACTONE [Concomitant]
     Indication: HYPERTENSION
     Dates: start: 20110917
  22. NEUPRO [Suspect]
     Indication: PARKINSON'S DISEASE
     Route: 062
     Dates: start: 20101028, end: 20110512
  23. MADOPAR [Concomitant]
     Dates: start: 20111209
  24. LEVOTHYROXINE SODIUM [Suspect]
     Indication: THYROID OPERATION
     Route: 048
     Dates: start: 20100801
  25. TORSEMIDE [Suspect]
     Indication: HYPERTENSION
     Route: 048
     Dates: start: 20110512, end: 20110917
  26. LEVOPAR [Concomitant]
     Dates: end: 20100415
  27. ENALAPRIL [Concomitant]
     Indication: HYPERTENSION
     Route: 048
  28. SIMVASTATIN [Concomitant]
     Indication: BLOOD CHOLESTEROL INCREASED
     Route: 048

REACTIONS (1)
  - ATRIAL FIBRILLATION [None]
